FAERS Safety Report 8719040 (Version 2)
Quarter: 2012Q4

REPORT INFORMATION
  Report Type: 
  Country: US (occurrence: US)
  Receive Date: 20120813
  Receipt Date: 20120911
  Transmission Date: 20130627
  Serious: Yes (Hospitalization)
  Sender: FDA-Public Use
  Company Number: US-AMGEN-USASP2012049532

PATIENT
  Age: 50 Year
  Sex: Male

DRUGS (2)
  1. ENBREL [Suspect]
     Indication: PSORIASIS
     Dosage: 50 mg, qwk
     Route: 058
     Dates: start: 200807
  2. DESONIDE [Concomitant]
     Indication: PSORIASIS
     Dosage: 0.05 UNK, UNK
     Route: 061

REACTIONS (2)
  - Arthropod sting [Recovered/Resolved]
  - Anaphylactic reaction [Recovered/Resolved]
